FAERS Safety Report 7088072-X (Version None)
Quarter: 2010Q4

REPORT INFORMATION
  Report Type: 
  Country: None (occurrence: None)
  Receive Date: 20101108
  Receipt Date: 20101103
  Transmission Date: 20110411
  Serious: Yes (Death, Hospitalization, Other)
  Sender: FDA-Public Use
  Company Number: PHFR2010GB02457

PATIENT
  Sex: Female

DRUGS (12)
  1. CLOZARIL [Suspect]
     Indication: SCHIZOAFFECTIVE DISORDER
     Dosage: UNK
     Route: 048
     Dates: start: 19991207
  2. CLOZARIL [Suspect]
     Dosage: 600 MG, UNK
  3. HYOSCINE HBR HYT [Concomitant]
     Dosage: 300 UG, UNK
     Route: 048
     Dates: start: 20060101
  4. VALPROATE SODIUM [Concomitant]
     Dosage: 1200 MG, QD
     Route: 048
     Dates: start: 20010101
  5. ALENDRONIC ACID [Concomitant]
     Dosage: 70 MG, QW
     Route: 048
  6. DIAZEPAM [Concomitant]
     Dosage: 2 MG, BID
     Route: 048
     Dates: start: 20070101
  7. OMEPRAZOLE [Concomitant]
     Dosage: 20 MG, QD
     Route: 048
     Dates: start: 20030101
  8. PEPTAC [Concomitant]
     Dosage: 10 ML, UNK
     Route: 048
  9. SULPIRIDE [Concomitant]
     Indication: SCHIZOPHRENIA
     Dosage: 200 MG, BID
     Dates: start: 20070101
  10. PROCYCLIDINE HYDROCHLORIDE 2MG TAB [Concomitant]
     Dosage: 5 MG, QD
     Dates: start: 20010101
  11. CITALOPRAM HYDROBROMIDE [Concomitant]
     Indication: SCHIZOPHRENIA
     Dosage: 20 MG, UNK
  12. CALCICHEW-D3 [Concomitant]
     Indication: OSTEOPOROSIS
     Dosage: 1 DF, BID
     Dates: start: 20050101

REACTIONS (5)
  - ANAEMIA [None]
  - CHRONIC OBSTRUCTIVE PULMONARY DISEASE [None]
  - HAEMORRHOIDS [None]
  - LUNG CANCER METASTATIC [None]
  - OSTEOPOROSIS [None]
